FAERS Safety Report 19118130 (Version 5)
Quarter: 2021Q2

REPORT INFORMATION
  Report Type: Report from Study
  Country: EG (occurrence: EG)
  Receive Date: 20210409
  Receipt Date: 20210624
  Transmission Date: 20210717
  Serious: Yes (Other)
  Sender: FDA-Public Use
  Company Number: EG-REGENERON PHARMACEUTICALS, INC.-2021-40920

PATIENT

DRUGS (10)
  1. EYLEA [Suspect]
     Active Substance: AFLIBERCEPT
     Indication: DIABETIC RETINAL OEDEMA
     Dosage: UNK, BOTH EYE
     Route: 031
     Dates: start: 20201206
  2. EYLEA [Suspect]
     Active Substance: AFLIBERCEPT
     Dosage: UNK,LEFT EYE
     Dates: start: 20210124
  3. METFORMIN HYDROCHLORIDE W/VILDAGLIPTIN [Concomitant]
     Active Substance: METFORMIN HYDROCHLORIDE\VILDAGLIPTIN
     Indication: DIABETES MELLITUS
     Dosage: 1 TABLET AFTER BREAKFAST AND DINNER
     Dates: start: 202010
  4. EYLEA [Suspect]
     Active Substance: AFLIBERCEPT
     Dosage: UNK; TOTAL OF 1 INJECTION IN THE RIGHT EYE AND 2 INJECTIONS IN THE LEFT EYE
     Dates: start: 20201206
  5. CONCOR 5 PLUS [Concomitant]
     Indication: HYPERTENSION
     Dosage: 1 TABLET, DAILY
     Dates: start: 2006
  6. DIAMICRON [Concomitant]
     Active Substance: GLICLAZIDE
     Indication: DIABETES MELLITUS
     Dosage: 1 AND 1/2 TABLETS, DAILY (15 MIN BEFORE BREAKFAST)
     Dates: start: 1999
  7. ATOREZA [Concomitant]
     Indication: HYPERCHOLESTEROLAEMIA
     Dosage: 1 TABLET AT NIGHT
     Dates: start: 202010
  8. EYLEA [Suspect]
     Active Substance: AFLIBERCEPT
     Dosage: UNK, LEFT EYE; LAST DOSE ADMINISTERED
     Dates: start: 20210124, end: 20210124
  9. TOMAZINE [Concomitant]
     Active Substance: CETIRIZINE HYDROCHLORIDE
     Indication: HYPERSENSITIVITY
     Dosage: 1 TABLET, DAILY (BEFORE SLEEPING)
     Dates: start: 202010
  10. ANTOPRAL [Concomitant]
     Active Substance: PANTOPRAZOLE SODIUM
     Indication: GASTROINTESTINAL DISORDER PROPHYLAXIS
     Dosage: 1 TABLET ON AN EMPTY STOMACH
     Dates: start: 202010

REACTIONS (8)
  - Eyelids pruritus [Not Recovered/Not Resolved]
  - Lacrimation increased [Not Recovered/Not Resolved]
  - Vitreous disorder [Unknown]
  - Eye pruritus [Not Recovered/Not Resolved]
  - Eye pain [Not Recovered/Not Resolved]
  - Macular oedema [Unknown]
  - Inappropriate schedule of product administration [Not Recovered/Not Resolved]
  - COVID-19 [Recovered/Resolved]

NARRATIVE: CASE EVENT DATE: 20201206
